FAERS Safety Report 24179053 (Version 1)
Quarter: 2024Q3

REPORT INFORMATION
  Report Type: Spontaneous
  Country: US (occurrence: US)
  Receive Date: 20240806
  Receipt Date: 20240806
  Transmission Date: 20241016
  Serious: No
  Sender: FERRING
  Company Number: US-FERRINGPH-2023FE05147

PATIENT
  Sex: Female

DRUGS (1)
  1. ENDOMETRIN [Suspect]
     Active Substance: PROGESTERONE
     Indication: Assisted reproductive technology
     Route: 065

REACTIONS (2)
  - Vaginal discharge [Unknown]
  - Emotional disorder [Unknown]
